FAERS Safety Report 8999362 (Version 1)
Quarter: 2013Q1

REPORT INFORMATION
  Report Type: Spontaneous
  Country: DE (occurrence: RS)
  Receive Date: 20130103
  Receipt Date: 20130103
  Transmission Date: 20140127
  Serious: Yes (Hospitalization)
  Sender: FDA-Public Use
  Company Number: RS-FRI-1000041353

PATIENT
  Sex: Female

DRUGS (3)
  1. MEMANTINE [Suspect]
     Dosage: 5 MG
     Route: 048
     Dates: start: 20121216, end: 20121222
  2. MEMANTINE [Suspect]
     Dosage: 10 MG
     Route: 048
     Dates: start: 20121223
  3. WARFARIN [Suspect]
     Dates: start: 201211

REACTIONS (1)
  - Faeces discoloured [Unknown]
